FAERS Safety Report 5265549-0 (Version None)
Quarter: 2007Q1

REPORT INFORMATION
  Report Type: 
  Country: None (occurrence: None)
  Receive Date: 20070314
  Receipt Date: 20070305
  Transmission Date: 20070707
  Serious: Yes (Other)
  Sender: FDA-Public Use
  Company Number: KR-PFIZER INC-2007017879

PATIENT

DRUGS (2)
  1. LYRICA [Suspect]
     Indication: POST HERPETIC NEURALGIA
     Route: 048
  2. CARDIOVASCULAR SYSTEM DRUGS [Concomitant]
     Route: 048

REACTIONS (2)
  - DYSPNOEA [None]
  - FACE OEDEMA [None]
